FAERS Safety Report 15879709 (Version 2)
Quarter: 2019Q1

REPORT INFORMATION
  Report Type: Report from Study
  Country: JP (occurrence: JP)
  Receive Date: 20190128
  Receipt Date: 20190228
  Transmission Date: 20190417
  Serious: Yes (Death, Other)
  Sender: FDA-Public Use
  Company Number: PHJP2018JP019918

PATIENT
  Age: 74 Year
  Sex: Female

DRUGS (1)
  1. ZYKADIA [Suspect]
     Active Substance: CERITINIB
     Indication: NON-SMALL CELL LUNG CANCER STAGE IV
     Dosage: 750 MG, QD
     Route: 048
     Dates: start: 20170208, end: 20170428

REACTIONS (11)
  - Muscular weakness [Fatal]
  - Epilepsy [Fatal]
  - Cachexia [Unknown]
  - General physical health deterioration [Fatal]
  - Seizure [Fatal]
  - Restlessness [Fatal]
  - Malignant neoplasm progression [Fatal]
  - Metastases to central nervous system [Fatal]
  - Non-small cell lung cancer stage IV [Fatal]
  - Altered state of consciousness [Fatal]
  - Decreased activity [Fatal]

NARRATIVE: CASE EVENT DATE: 20170427
